FAERS Safety Report 6089174-7 (Version None)
Quarter: 2009Q1

REPORT INFORMATION
  Report Type: 
  Country: None (occurrence: None)
  Receive Date: 20090224
  Receipt Date: 20090212
  Transmission Date: 20090719
  Serious: Yes (Hospitalization)
  Sender: FDA-Public Use
  Company Number: PL-PFIZER INC-2006080337

PATIENT

DRUGS (3)
  1. SUNITINIB MALATE [Suspect]
     Indication: METASTATIC RENAL CELL CARCINOMA
     Dosage: QD INTERVAL EVERY DAY
     Route: 048
     Dates: start: 20060520
  2. EFFOX LONG [Concomitant]
     Route: 048
     Dates: start: 20060607
  3. MOLSIDOMINE [Concomitant]
     Route: 048
     Dates: start: 20060607

REACTIONS (1)
  - HYPOTONIA [None]
